FAERS Safety Report 5355960-1 (Version None)
Quarter: 2007Q2

REPORT INFORMATION
  Report Type: 
  Country: None (occurrence: None)
  Receive Date: 20070613
  Receipt Date: 20070604
  Transmission Date: 20071010
  Serious: Yes (Death)
  Sender: FDA-Public Use
  Company Number: US-SANOFI-SYNTHELABO-A03200703481

PATIENT
  Age: 89 Year
  Sex: Female

DRUGS (5)
  1. POTASSIUM ACETATE [Concomitant]
     Dosage: UNK
     Route: 065
  2. DIURETIC [Concomitant]
     Dosage: UNK
     Route: 065
  3. SYNTHROID [Concomitant]
     Dosage: UNK
     Route: 065
  4. COUMADIN [Concomitant]
     Dosage: UNK
     Route: 065
  5. AMBIEN [Suspect]
     Indication: INSOMNIA
     Dosage: UNK
     Route: 048
     Dates: start: 20061003

REACTIONS (7)
  - CONCUSSION [None]
  - FAILURE TO THRIVE [None]
  - FALL [None]
  - HAEMATOMA [None]
  - HALLUCINATION [None]
  - LOSS OF CONSCIOUSNESS [None]
  - SKULL FRACTURE [None]
